FAERS Safety Report 18640024 (Version 1)
Quarter: 2020Q4

REPORT INFORMATION
  Report Type: Spontaneous
  Country: US (occurrence: US)
  Receive Date: 20201220
  Receipt Date: 20201220
  Transmission Date: 20210114
  Serious: No
  Sender: FDA-Public Use
  Company Number: US-PACIRA-202000336

PATIENT
  Age: 26 Year
  Sex: Male

DRUGS (1)
  1. EXPAREL [Suspect]
     Active Substance: BUPIVACAINE
     Indication: ACCIDENTAL EXPOSURE TO PRODUCT
     Dosage: NOT PROVIDED
     Route: 047

REACTIONS (2)
  - Feeling abnormal [Unknown]
  - Accidental exposure to product [Unknown]
